FAERS Safety Report 8187934-X (Version None)
Quarter: 2012Q1

REPORT INFORMATION
  Report Type: 
  Country: None (occurrence: None)
  Receive Date: 20120306
  Receipt Date: 20120227
  Transmission Date: 20120608
  Serious: Yes (Other)
  Sender: FDA-Public Use
  Company Number: JP-GLAXOSMITHKLINE-B0772037A

PATIENT
  Sex: Female

DRUGS (3)
  1. LITHIUM CARBONATE [Concomitant]
     Indication: BIPOLAR DISORDER
     Dosage: 800MG PER DAY
     Route: 048
     Dates: start: 20111109, end: 20120117
  2. LAMICTAL [Suspect]
     Indication: BIPOLAR DISORDER
     Dosage: 25MG PER DAY
     Route: 048
     Dates: start: 20111122, end: 20111206
  3. LITHIUM CARBONATE [Concomitant]
     Route: 048
     Dates: start: 20120118

REACTIONS (6)
  - PYREXIA [None]
  - DRUG ERUPTION [None]
  - OROPHARYNGEAL PAIN [None]
  - OCULAR HYPERAEMIA [None]
  - C-REACTIVE PROTEIN INCREASED [None]
  - STEVENS-JOHNSON SYNDROME [None]
